FAERS Safety Report 5227640-4 (Version None)
Quarter: 2007Q1

REPORT INFORMATION
  Report Type: 
  Country: None (occurrence: None)
  Receive Date: 20070202
  Receipt Date: 20070126
  Transmission Date: 20070707
  Serious: Yes (Life-Threatening)
  Sender: FDA-Public Use
  Company Number: US-BOEHRINGER INGELHEIM PHARMACEUTICALS, INC.-2007-DE-00493GD

PATIENT
  Age: 24 Month
  Sex: Male

DRUGS (4)
  1. PREDNISONE [Suspect]
     Indication: PULMONARY HAEMOSIDEROSIS
     Dosage: BEGINNING AT 2 MG/KG BODY WEIGHT
  2. IPRATROPIUM BROMIDE [Suspect]
     Indication: RESPIRATORY FAILURE
     Route: 055
  3. ALBUTEROL [Suspect]
     Indication: RESPIRATORY FAILURE
     Route: 055
  4. HYDROXYCHLOROQUINE SULFATE [Concomitant]
     Indication: PULMONARY HAEMOSIDEROSIS

REACTIONS (3)
  - ABNORMAL BEHAVIOUR [None]
  - CONDITION AGGRAVATED [None]
  - PSYCHOMOTOR HYPERACTIVITY [None]
